FAERS Safety Report 20880356 (Version 1)
Quarter: 2022Q2

REPORT INFORMATION
  Report Type: Spontaneous
  Country: ES (occurrence: ES)
  Receive Date: 20220526
  Receipt Date: 20220526
  Transmission Date: 20220721
  Serious: Yes (Hospitalization)
  Sender: FDA-Public Use
  Company Number: None

PATIENT
  Age: 71 Year
  Sex: Male

DRUGS (10)
  1. LORAZEPAM [Suspect]
     Active Substance: LORAZEPAM
     Indication: Insomnia
     Dosage: 1 MG, 1X/DAY (EVERY 24 HOURS)
     Route: 048
     Dates: start: 20201218, end: 20201228
  2. OMEPRAZOL PENSA [OMEPRAZOLE] [Concomitant]
     Indication: Cardiac failure congestive
     Dosage: 20 MG A-DE (UNKNOWN MEANING)
     Route: 048
     Dates: start: 20110323
  3. SALBUTAMOL ALDO UNION [Concomitant]
     Indication: Bronchitis chronic
     Dosage: 100 UG EVERY 8 HOURS
     Route: 050
     Dates: start: 20151112
  4. ESIDREX [Concomitant]
     Active Substance: HYDROCHLOROTHIAZIDE
     Indication: Hypertension
     Dosage: 25 MG DE (UNKNOWN MEANING)
     Route: 048
     Dates: start: 20200310
  5. CARVEDILOL [Concomitant]
     Active Substance: CARVEDILOL
     Indication: Blood pressure increased
     Dosage: 6.25 MG DECE (UNKNOWN MEANING)
     Route: 048
     Dates: start: 20190625
  6. AMLODIPINE BESYLATE [Concomitant]
     Active Substance: AMLODIPINE BESYLATE
     Indication: Blood pressure increased
     Dosage: 10 MG DECE (UNKNOWN MEANING)
     Route: 048
     Dates: start: 20170613
  7. ASPIRIN [Concomitant]
     Active Substance: ASPIRIN
     Indication: Cellulitis
     Dosage: 100 MG CO (UNKNOWN MEANING)
     Route: 048
     Dates: start: 20150511
  8. CELECREM [Concomitant]
     Indication: Dermatitis
     Dosage: 1 APPLICATION EVERY 24 HOURS
     Route: 061
     Dates: start: 20180503
  9. ENALAPRIL [Concomitant]
     Active Substance: ENALAPRIL
     Indication: Malignant hypertension
     Dosage: 5 MG DECE (UNKNOWN MEANING)
     Route: 048
     Dates: start: 20200310
  10. HEMOVAS [Concomitant]
     Indication: Vitamin D deficiency
     Dosage: 600 MG DE (UNKNOWN MEANING)
     Route: 048
     Dates: start: 20200212

REACTIONS (2)
  - Dyspnoea [Recovered/Resolved]
  - Somnolence [Recovered/Resolved]

NARRATIVE: CASE EVENT DATE: 20201228
